FAERS Safety Report 7169572-0 (Version None)
Quarter: 2010Q4

REPORT INFORMATION
  Report Type: 
  Country: None (occurrence: None)
  Receive Date: 20101217
  Receipt Date: 20101214
  Transmission Date: 20110411
  Serious: Yes (Other)
  Sender: FDA-Public Use
  Company Number: DE-PFIZER INC-2010163360

PATIENT
  Age: 38 Year
  Sex: Female

DRUGS (1)
  1. SAYANA [Suspect]
     Indication: CONTRACEPTION
     Dosage: 1 DF, UNK
     Route: 058
     Dates: start: 20091218, end: 20101125

REACTIONS (5)
  - INJECTION SITE NECROSIS [None]
  - INJECTION SITE REACTION [None]
  - INJECTION SITE SWELLING [None]
  - SKIN DISCOLOURATION [None]
  - SKIN STRIAE [None]
